FAERS Safety Report 12528226 (Version 1)
Quarter: 2016Q3

REPORT INFORMATION
  Report Type: Spontaneous
  Country: IT (occurrence: IT)
  Receive Date: 20160705
  Receipt Date: 20160705
  Transmission Date: 20161109
  Serious: Yes (Other)
  Sender: FDA-Public Use
  Company Number: IT-BAXTER-2016BAX034361

PATIENT
  Sex: Female
  Weight: 2.06 kg

DRUGS (8)
  1. ENDOXAN BAXTER [Suspect]
     Active Substance: CYCLOPHOSPHAMIDE
     Indication: FOETAL EXPOSURE TIMING UNSPECIFIED
     Route: 064
  2. PREDNISONE. [Suspect]
     Active Substance: PREDNISONE
     Indication: FOETAL EXPOSURE TIMING UNSPECIFIED
     Route: 064
  3. PREDNISONE. [Suspect]
     Active Substance: PREDNISONE
     Dosage: DOSE TAPERED
     Route: 064
  4. METHYLPREDNISOLONE. [Suspect]
     Active Substance: METHYLPREDNISOLONE
     Indication: FOETAL EXPOSURE TIMING UNSPECIFIED
     Route: 064
  5. RAMIPRIL. [Suspect]
     Active Substance: RAMIPRIL
     Indication: FOETAL EXPOSURE TIMING UNSPECIFIED
     Dosage: UNTIL THE 12 WEEK OF PREGNANCY
     Route: 064
  6. FUROSEMIDE. [Suspect]
     Active Substance: FUROSEMIDE
     Indication: FOETAL EXPOSURE TIMING UNSPECIFIED
     Route: 064
  7. EPO [Suspect]
     Active Substance: ERYTHROPOIETIN
     Indication: FOETAL EXPOSURE TIMING UNSPECIFIED
     Route: 064
  8. LANSOPRAZOLE. [Suspect]
     Active Substance: LANSOPRAZOLE
     Indication: FOETAL EXPOSURE TIMING UNSPECIFIED
     Route: 064

REACTIONS (2)
  - Maternal exposure before pregnancy [Recovered/Resolved]
  - Premature baby [Recovered/Resolved]
